FAERS Safety Report 21914201 (Version 6)
Quarter: 2024Q4

REPORT INFORMATION
  Report Type: Report from Study
  Country: US (occurrence: US)
  Receive Date: 20230126
  Receipt Date: 20241101
  Transmission Date: 20250115
  Serious: Yes (Hospitalization, Other)
  Sender: ABBVIE
  Company Number: US-ABBVIE-4283575

PATIENT
  Age: 69 Year
  Sex: Female
  Weight: 89.811 kg

DRUGS (10)
  1. HUMIRA [Suspect]
     Active Substance: ADALIMUMAB
     Indication: Rheumatoid arthritis
     Dosage: FORM STRENGTH: 40 MILLIGRAM
     Route: 058
  2. HUMIRA [Suspect]
     Active Substance: ADALIMUMAB
     Indication: Scleritis
     Dosage: FORM STRENGTH: 40 MILLIGRAM
     Route: 058
     Dates: start: 20191023, end: 202309
  3. HUMIRA [Suspect]
     Active Substance: ADALIMUMAB
     Route: 058
     Dates: start: 20170208
  4. HUMIRA [Suspect]
     Active Substance: ADALIMUMAB
     Route: 058
     Dates: start: 202311
  5. LEXAPRO [Concomitant]
     Active Substance: ESCITALOPRAM OXALATE
     Indication: Product used for unknown indication
  6. ACTIFED (PSEUDOEPHEDRINE HYDROCHLORIDE\TRIPROLIDINE HYDROCHLORIDE) [Concomitant]
     Active Substance: PSEUDOEPHEDRINE HYDROCHLORIDE\TRIPROLIDINE HYDROCHLORIDE
     Indication: Abdominal pain upper
  7. HYDROCODONE [Concomitant]
     Active Substance: HYDROCODONE
     Indication: Product used for unknown indication
  8. CELEBREX [Concomitant]
     Active Substance: CELECOXIB
     Indication: Product used for unknown indication
  9. LIDOCAINE [Suspect]
     Active Substance: LIDOCAINE
     Indication: Product used for unknown indication
     Route: 065
  10. EPINEPHRINE [Suspect]
     Active Substance: EPINEPHRINE
     Indication: Product used for unknown indication
     Route: 065

REACTIONS (23)
  - Nerve compression [Recovering/Resolving]
  - Cervix carcinoma stage II [Recovered/Resolved]
  - Osteoarthritis [Recovering/Resolving]
  - Skin cancer [Unknown]
  - Visual impairment [Unknown]
  - Off label use [Not Recovered/Not Resolved]
  - Basal cell carcinoma [Recovered/Resolved]
  - Respiratory tract infection [Unknown]
  - Therapeutic nerve ablation [Not Recovered/Not Resolved]
  - Dacryolith [Recovered/Resolved]
  - Vomiting [Unknown]
  - Macular hole [Recovering/Resolving]
  - Herpes zoster [Recovering/Resolving]
  - Back disorder [Recovering/Resolving]
  - Mast cell activation syndrome [Unknown]
  - Eye contusion [Unknown]
  - Eye swelling [Unknown]
  - Scleritis [Unknown]
  - Peripheral swelling [Unknown]
  - Histamine level increased [Unknown]
  - Diarrhoea [Unknown]
  - Back pain [Unknown]
  - Back injury [Unknown]

NARRATIVE: CASE EVENT DATE: 20120101
